FAERS Safety Report 4647445-2 (Version None)
Quarter: 2005Q2

REPORT INFORMATION
  Report Type: 
  Country: None (occurrence: None)
  Receive Date: 20050426
  Receipt Date: 20050413
  Transmission Date: 20051028
  Serious: Yes (Life-Threatening)
  Sender: FDA-Public Use
  Company Number: 2005059930

PATIENT
  Age: 71 Year
  Sex: Female

DRUGS (2)
  1. SOLU-MEDROL [Suspect]
     Indication: LIVER TRANSPLANT REJECTION
     Dosage: 1000 MG (1 D), INTRAVENOUS
     Route: 042
     Dates: start: 20050404, end: 20050406
  2. TACROLIMUS (TRACROLIMUS) [Concomitant]

REACTIONS (2)
  - DIALYSIS [None]
  - LIVER DISORDER [None]
